FAERS Safety Report 18952898 (Version 1)
Quarter: 2021Q1

REPORT INFORMATION
  Report Type: Spontaneous
  Country: FR (occurrence: FR)
  Receive Date: 20210301
  Receipt Date: 20210301
  Transmission Date: 20210420
  Serious: Yes (Other)
  Sender: FDA-Public Use
  Company Number: FR-JNJFOC-20210233282

PATIENT
  Age: 60 Year
  Sex: Female

DRUGS (1)
  1. SPRAVATO [Suspect]
     Active Substance: ESKETAMINE
     Indication: DEPRESSION
     Dates: start: 202012

REACTIONS (4)
  - Post-traumatic stress disorder [Recovered/Resolved]
  - Paralysis [Recovered/Resolved]
  - Eye movement disorder [Recovered/Resolved]
  - Dissociation [Recovered/Resolved]
